FAERS Safety Report 16668306 (Version 2)
Quarter: 2020Q2

REPORT INFORMATION
  Report Type: Spontaneous
  Country: US (occurrence: US)
  Receive Date: 20190805
  Receipt Date: 20200430
  Transmission Date: 20200713
  Serious: No
  Sender: FDA-Public Use
  Company Number: US-PFIZER INC-2019330636

PATIENT
  Age: 41 Year
  Sex: Male

DRUGS (2)
  1. HYDROXYZINE HCL [Suspect]
     Active Substance: HYDROXYZINE HYDROCHLORIDE
     Dosage: UNK
  2. VISTARIL [Suspect]
     Active Substance: HYDROXYZINE PAMOATE
     Dosage: UNK

REACTIONS (1)
  - Drug hypersensitivity [Unknown]
